FAERS Safety Report 25940926 (Version 1)
Quarter: 2025Q4

REPORT INFORMATION
  Report Type: Spontaneous
  Country: EU (occurrence: EU)
  Receive Date: 20251020
  Receipt Date: 20251020
  Transmission Date: 20260118
  Serious: Yes (Death, Other)
  Sender: FRESENIUS KABI
  Company Number: EU-FreseniusKabi-FK202514127

PATIENT
  Age: 69 Year
  Sex: Male

DRUGS (2)
  1. ROPIVACAINE [Suspect]
     Active Substance: ROPIVACAINE
     Indication: Local anaesthesia
  2. ROPIVACAINE [Suspect]
     Active Substance: ROPIVACAINE
     Indication: Ankle operation

REACTIONS (3)
  - Overdose [Fatal]
  - Pulmonary embolism [Fatal]
  - Arrhythmia [Fatal]
